FAERS Safety Report 9412067 (Version 1)
Quarter: 2013Q3

REPORT INFORMATION
  Report Type: Spontaneous
  Country: US (occurrence: US)
  Receive Date: 20130722
  Receipt Date: 20130722
  Transmission Date: 20140515
  Serious: Yes (Hospitalization)
  Sender: FDA-Public Use
  Company Number: US-BAYER-2013-088160

PATIENT
  Age: 48 Year
  Sex: Female

DRUGS (5)
  1. YASMIN [Suspect]
     Indication: MENSTRUAL CYCLE MANAGEMENT
  2. NEXIUM [Concomitant]
  3. REGLAN [Concomitant]
  4. PROZAC [Concomitant]
  5. IBUPROFEN [Concomitant]

REACTIONS (1)
  - Pulmonary embolism [Recovered/Resolved]
